FAERS Safety Report 12624316 (Version 2)
Quarter: 2016Q3

REPORT INFORMATION
  Report Type: Spontaneous
  Country: JP (occurrence: JP)
  Receive Date: 20160805
  Receipt Date: 20160830
  Transmission Date: 20161109
  Serious: Yes (Hospitalization)
  Sender: FDA-Public Use
  Company Number: JP-AMGEN-JPNSP2016101278

PATIENT
  Age: 68 Year
  Sex: Female
  Weight: 53 kg

DRUGS (18)
  1. G-LASTA [Suspect]
     Active Substance: PEGFILGRASTIM
     Indication: COLONY STIMULATING FACTOR PROPHYLAXIS
     Dosage: 3.6 MG, UNK
     Route: 058
  2. DOCETAXEL. [Suspect]
     Active Substance: DOCETAXEL
     Indication: BREAST CANCER
     Dosage: UNK
     Route: 041
  3. ENDOXAN [Suspect]
     Active Substance: CYCLOPHOSPHAMIDE
     Indication: BREAST CANCER
     Dosage: UNK
     Route: 041
  4. ENDOXAN [Suspect]
     Active Substance: CYCLOPHOSPHAMIDE
     Dosage: 890 MG, UNK
     Route: 041
     Dates: start: 20160712
  5. ROCALTROL [Concomitant]
     Active Substance: CALCITRIOL
     Dosage: 0.25 MG, UNK
     Route: 048
     Dates: start: 20160712
  6. HERCEPTIN [Suspect]
     Active Substance: TRASTUZUMAB
     Dosage: 315 MG, UNK
     Route: 041
     Dates: start: 20160712
  7. DOCETAXEL. [Suspect]
     Active Substance: DOCETAXEL
     Dosage: 110 MG, UNK
     Route: 041
     Dates: start: 20160712
  8. SEROTONE [Concomitant]
     Active Substance: AZASETRON HYDROCHLORIDE
     Indication: PRODUCT USED FOR UNKNOWN INDICATION
     Dosage: 10 MG, UNK
     Route: 048
     Dates: start: 20160712
  9. G-LASTA [Suspect]
     Active Substance: PEGFILGRASTIM
     Dosage: UNK
     Route: 058
     Dates: start: 20160713
  10. HERCEPTIN [Suspect]
     Active Substance: TRASTUZUMAB
     Indication: BREAST CANCER
     Dosage: UNK, UNK
     Route: 041
  11. CYCLOPHOSPHAMIDE HYDRATE [Suspect]
     Active Substance: CYCLOPHOSPHAMIDE
     Indication: BREAST CANCER
     Dosage: UNK
     Route: 041
  12. ZANTAC [Concomitant]
     Active Substance: RANITIDINE HYDROCHLORIDE
     Dosage: 150 MG, 14 TIMES IN TOTAL
     Route: 048
     Dates: start: 20160712, end: 20160728
  13. TAXOTERE [Suspect]
     Active Substance: DOCETAXEL
     Indication: BREAST CANCER
     Dosage: UNK
     Route: 041
  14. RESTAMIN [Concomitant]
     Active Substance: DIPHENHYDRAMINE
     Dosage: 50 MG, UNK
     Route: 048
     Dates: start: 20160712
  15. DECADRON [Concomitant]
     Active Substance: DEXAMETHASONE
     Dosage: 4 MG, 3 TIMES IN TOTAL
     Route: 048
     Dates: start: 20160713, end: 20160715
  16. NAUZELIN [Concomitant]
     Active Substance: DOMPERIDONE
     Dosage: 10 MG, 14 TIMES IN TOTAL
     Route: 048
     Dates: start: 20160712, end: 20160728
  17. DECADRON [Concomitant]
     Active Substance: DEXAMETHASONE
     Dosage: 6.6 MG, UNK
     Route: 042
     Dates: start: 20160712
  18. SELBEX [Concomitant]
     Active Substance: TEPRENONE
     Dosage: 50 MG, 14 TIMES IN TOTAL
     Route: 048
     Dates: start: 20160712, end: 20160728

REACTIONS (2)
  - Interstitial lung disease [Recovering/Resolving]
  - Pyrexia [Recovering/Resolving]

NARRATIVE: CASE EVENT DATE: 20160718
